FAERS Safety Report 24067956 (Version 1)
Quarter: 2024Q3

REPORT INFORMATION
  Report Type: Report from Study
  Country: US (occurrence: US)
  Receive Date: 20240710
  Receipt Date: 20240710
  Transmission Date: 20241017
  Serious: Yes (Death)
  Sender: ROCHE
  Company Number: US-ROCHE-3565797

PATIENT
  Age: 65 Year
  Sex: Female

DRUGS (5)
  1. OCREVUS [Suspect]
     Active Substance: OCRELIZUMAB
     Indication: Relapsing multiple sclerosis
     Dosage: DATE OF TREATMENT: 19-DEC-2023
     Route: 065
     Dates: start: 2017
  2. AUBAGIO [Concomitant]
     Active Substance: TERIFLUNOMIDE
  3. TYSABRI [Concomitant]
     Active Substance: NATALIZUMAB
  4. GILENYA [Concomitant]
     Active Substance: FINGOLIMOD HYDROCHLORIDE
  5. TECFIDERA [Concomitant]
     Active Substance: DIMETHYL FUMARATE

REACTIONS (1)
  - Death [Fatal]

NARRATIVE: CASE EVENT DATE: 20240415
